FAERS Safety Report 12770481 (Version 1)
Quarter: 2016Q3

REPORT INFORMATION
  Report Type: Spontaneous
  Country: VE (occurrence: VE)
  Receive Date: 20160922
  Receipt Date: 20160922
  Transmission Date: 20161109
  Serious: Yes (Other)
  Sender: FDA-Public Use
  Company Number: PHHY2016VE127892

PATIENT
  Sex: Male

DRUGS (2)
  1. MIFLONIDE [Suspect]
     Active Substance: BUDESONIDE
     Indication: PRODUCT USED FOR UNKNOWN INDICATION
     Dosage: 12 MCG, UNK
     Route: 065
  2. FORADIL [Suspect]
     Active Substance: FORMOTEROL FUMARATE
     Indication: PRODUCT USED FOR UNKNOWN INDICATION
     Dosage: 400 MCG, UNK
     Route: 065

REACTIONS (3)
  - Respiratory disorder [Unknown]
  - Renal disorder [Unknown]
  - Neoplasm malignant [Unknown]
